FAERS Safety Report 9355668 (Version 1)
Quarter: 2013Q2

REPORT INFORMATION
  Report Type: Report from Study
  Country: BD (occurrence: BD)
  Receive Date: 20130619
  Receipt Date: 20130619
  Transmission Date: 20140414
  Serious: Yes (Death, Hospitalization)
  Sender: FDA-Public Use
  Company Number: PHHY2013BD056395

PATIENT
  Age: 79 Year
  Sex: Male

DRUGS (1)
  1. ACLASTA [Suspect]
     Indication: OSTEOPOROSIS
     Dosage: ONCE YEARLY
     Route: 042
     Dates: start: 20120610

REACTIONS (2)
  - Abdominal neoplasm [Fatal]
  - Respiratory distress [Fatal]
